FAERS Safety Report 20978172 (Version 1)
Quarter: 2022Q2

REPORT INFORMATION
  Report Type: Report from Study
  Country: IT (occurrence: IT)
  Receive Date: 20220618
  Receipt Date: 20220618
  Transmission Date: 20220721
  Serious: Yes (Other)
  Sender: FDA-Public Use
  Company Number: None

PATIENT
  Age: 86 Year

DRUGS (3)
  1. FUROSEMIDE [Suspect]
     Active Substance: FUROSEMIDE
     Indication: Product used for unknown indication
     Dosage: 1 DOSAGE FORM, QD
     Route: 048
     Dates: start: 20220101, end: 20220523
  2. ASCRIPTIN [Concomitant]
     Active Substance: ASPIRIN
     Dosage: UNK
  3. Dobetin [Concomitant]
     Dosage: UNK

REACTIONS (3)
  - Asthenia [Recovering/Resolving]
  - Dehydration [Recovering/Resolving]
  - Hypokalaemia [Recovering/Resolving]

NARRATIVE: CASE EVENT DATE: 20220523
